FAERS Safety Report 5282208-9 (Version None)
Quarter: 2007Q1

REPORT INFORMATION
  Report Type: 
  Country: None (occurrence: None)
  Receive Date: 20070330
  Receipt Date: 20070319
  Transmission Date: 20070707
  Serious: Yes (Hospitalization)
  Sender: FDA-Public Use
  Company Number: FR-PFIZER INC-2007021535

PATIENT
  Age: 45 Year
  Sex: Male
  Weight: 48 kg

DRUGS (5)
  1. SUTENT [Suspect]
     Indication: RENAL NEOPLASM
     Route: 048
  2. SOLU-MEDROL [Suspect]
     Dosage: DAILY DOSE:120MG-TEXT:120MG/2ML-FREQ:DAILY: EVERY DAY
     Route: 058
     Dates: start: 20070131, end: 20070223
  3. AMITRIPTYLINE HYDROCHLORIDE [Suspect]
     Route: 048
  4. ESOMEPRAZOLE MAGNESIUM [Suspect]
     Route: 048
  5. FLUINDIONE [Suspect]
     Indication: PULMONARY EMBOLISM
     Route: 048

REACTIONS (4)
  - DERMATITIS EXFOLIATIVE [None]
  - DRY SKIN [None]
  - FLUSHING [None]
  - SKIN EXFOLIATION [None]
